FAERS Safety Report 20880453 (Version 2)
Quarter: 2022Q2

REPORT INFORMATION
  Report Type: Spontaneous
  Country: US (occurrence: US)
  Receive Date: 20220526
  Receipt Date: 20220603
  Transmission Date: 20220721
  Serious: Yes (Other)
  Sender: FDA-Public Use
  Company Number: US-ALLERGAN-2216904US

PATIENT
  Sex: Female
  Weight: 41.3 kg

DRUGS (1)
  1. CARAFATE [Suspect]
     Active Substance: SUCRALFATE
     Indication: Gastrooesophageal reflux disease
     Dosage: 1G/10ML 4 TIMES DAILY BEFORE MEALS
     Route: 048
     Dates: start: 202110

REACTIONS (4)
  - Surgery [Unknown]
  - Lung neoplasm malignant [Not Recovered/Not Resolved]
  - Dyspepsia [Unknown]
  - Dysphagia [Unknown]

NARRATIVE: CASE EVENT DATE: 20211001
